FAERS Safety Report 21819204 (Version 1)
Quarter: 2023Q1

REPORT INFORMATION
  Report Type: Spontaneous
  Country: US (occurrence: US)
  Receive Date: 20230104
  Receipt Date: 20230104
  Transmission Date: 20230417
  Serious: No
  Sender: FDA-Public Use
  Company Number: US-ABBVIE-4203408

PATIENT
  Age: 59 Year
  Sex: Male
  Weight: 95.254 kg

DRUGS (1)
  1. HUMIRA [Suspect]
     Active Substance: ADALIMUMAB
     Indication: Spondylitis
     Dosage: START DATE: MORE THAN 2 YEARS
     Route: 058

REACTIONS (2)
  - Off label use [Not Recovered/Not Resolved]
  - Injection site discharge [Not Recovered/Not Resolved]

NARRATIVE: CASE EVENT DATE: 20221111
